FAERS Safety Report 9503276 (Version 3)
Quarter: 2013Q4

REPORT INFORMATION
  Report Type: Spontaneous
  Country: JP (occurrence: JP)
  Receive Date: 20130906
  Receipt Date: 20131031
  Transmission Date: 20140711
  Serious: Yes (Life-Threatening)
  Sender: FDA-Public Use
  Company Number: JP-TAKEDA-2013TJP000067

PATIENT
  Age: 70 Year
  Sex: Female

DRUGS (1)
  1. LANSAP 800 [Suspect]
     Indication: HELICOBACTER INFECTION
     Dosage: UNK
     Route: 048

REACTIONS (1)
  - Hepatic function abnormal [Recovering/Resolving]
